FAERS Safety Report 16137542 (Version 1)
Quarter: 2019Q2

REPORT INFORMATION
  Report Type: Report from Study
  Country: CZ (occurrence: CZ)
  Receive Date: 20190401
  Receipt Date: 20190401
  Transmission Date: 20190711
  Serious: Yes (Death, Hospitalization)
  Sender: FDA-Public Use
  Company Number: CZ-ACCORD-116384

PATIENT
  Age: 60 Year
  Sex: Male
  Weight: 117.1 kg

DRUGS (7)
  1. FUROSEMIDE. [Concomitant]
     Active Substance: FUROSEMIDE
     Indication: CORONARY ARTERY DISEASE
     Dosage: 40 G, QD
     Route: 048
     Dates: start: 20130913, end: 20150406
  2. FENOFIBRATE. [Concomitant]
     Active Substance: FENOFIBRATE
     Indication: DYSLIPIDAEMIA
     Dosage: 80 G, QD
     Route: 048
     Dates: start: 20080621, end: 20150406
  3. CLOPIDOGREL [Suspect]
     Active Substance: CLOPIDOGREL BISULFATE
     Indication: CORONARY ARTERY DISEASE
     Dosage: 75 G, QD
     Route: 048
     Dates: start: 20080621, end: 20150406
  4. ACZ885 [Suspect]
     Active Substance: CANAKINUMAB
     Indication: CARDIOVASCULAR EVENT PROPHYLAXIS
     Dosage: 300 MG, QUARTERLY
     Route: 058
     Dates: start: 20131022
  5. PERINDOPRIL/PERINDOPRIL ERBUMINE [Concomitant]
     Indication: CORONARY ARTERY DISEASE
     Dosage: 2.5 G, QD
     Route: 048
     Dates: start: 20080621, end: 20150406
  6. SPIRONOLACTONE. [Concomitant]
     Active Substance: SPIRONOLACTONE
     Indication: CORONARY ARTERY DISEASE
     Dosage: 25 G, QD
     Route: 065
     Dates: start: 20110913, end: 20150406
  7. METOPROLOL. [Concomitant]
     Active Substance: METOPROLOL
     Indication: CORONARY ARTERY DISEASE
     Dosage: 25 G, QD
     Route: 048
     Dates: start: 20080621, end: 20150406

REACTIONS (2)
  - Cardiac failure [Fatal]
  - Duodenitis [Recovered/Resolved]

NARRATIVE: CASE EVENT DATE: 20150316
